FAERS Safety Report 7564910-9 (Version None)
Quarter: 2011Q2

REPORT INFORMATION
  Report Type: 
  Country: None (occurrence: None)
  Receive Date: 20110622
  Receipt Date: 20110216
  Transmission Date: 20111010
  Serious: Yes (Other)
  Sender: FDA-Public Use
  Company Number: US-MYLANLABS-2011S1003103

PATIENT
  Age: 61 Year
  Sex: Female

DRUGS (14)
  1. CELEXA [Concomitant]
  2. REMERON [Concomitant]
  3. TYLENOL-500 [Concomitant]
     Dosage: USING TYLENOL, 650MG TABLET X 2 QID
  4. LOPRESSOR [Concomitant]
  5. POTASSIUM [Concomitant]
  6. VITAMIN E [Concomitant]
  7. PREVACID [Concomitant]
  8. SIMVASTATIN [Concomitant]
  9. LASIX [Concomitant]
  10. CLOZAPINE [Suspect]
     Indication: SCHIZOPHRENIA, PARANOID TYPE
     Route: 048
     Dates: end: 20110210
  11. BENTYL [Concomitant]
  12. TRAMADOL HCL [Concomitant]
  13. CIPROFLOXACIN [Concomitant]
  14. NEURONTIN [Concomitant]

REACTIONS (2)
  - GRANULOCYTOPENIA [None]
  - LEUKOPENIA [None]
